FAERS Safety Report 7617598-2 (Version None)
Quarter: 2011Q3

REPORT INFORMATION
  Report Type: 
  Country: None (occurrence: None)
  Receive Date: 20110718
  Receipt Date: 20110705
  Transmission Date: 20111222
  Serious: Yes (Other)
  Sender: FDA-Public Use
  Company Number: NL-JNJFOC-20110305886

PATIENT
  Age: 59 Year
  Sex: Male
  Weight: 84 kg

DRUGS (3)
  1. INFLIXIMAB [Suspect]
     Dosage: 15 TOTAL INFUSIONS (20 MONTHS OF TREATMENT)
     Route: 042
     Dates: start: 20090902
  2. INFLIXIMAB [Suspect]
     Indication: HIDRADENITIS
     Dosage: AT WEEK 0, 2, AND 6
     Route: 042
     Dates: start: 20071029
  3. INFLIXIMAB [Suspect]
     Route: 042

REACTIONS (2)
  - POLYARTHRITIS [None]
  - DRUG SPECIFIC ANTIBODY PRESENT [None]
